FAERS Safety Report 6348685-7 (Version None)
Quarter: 2009Q3

REPORT INFORMATION
  Report Type: 
  Country: None (occurrence: None)
  Receive Date: 20090911
  Receipt Date: 20090831
  Transmission Date: 20100115
  Serious: Yes (Death, Disabling, Other)
  Sender: FDA-Public Use
  Company Number: US-PFIZER INC-2009191688

PATIENT
  Sex: Female
  Weight: 84 kg

DRUGS (2)
  1. PROVERA [Suspect]
     Indication: HORMONE REPLACEMENT THERAPY
     Dosage: 2.5 MG, 5 MG UNK
     Route: 065
     Dates: start: 19931209, end: 19980301
  2. PREMARIN [Suspect]
     Indication: HORMONE REPLACEMENT THERAPY
     Dosage: 0.625 MG, 1.25 MG UNK
     Route: 065
     Dates: start: 19940118, end: 19960101

REACTIONS (3)
  - ANXIETY [None]
  - BREAST CANCER FEMALE [None]
  - DEPRESSION [None]
